FAERS Safety Report 14641781 (Version 1)
Quarter: 2018Q1

REPORT INFORMATION
  Report Type: Spontaneous
  Country: US (occurrence: US)
  Receive Date: 20180315
  Receipt Date: 20180315
  Transmission Date: 20180509
  Serious: No
  Sender: FDA-Public Use
  Company Number: US-009507513-1803USA005859

PATIENT
  Age: 68 Year
  Sex: Female

DRUGS (2)
  1. BELSOMRA [Suspect]
     Active Substance: SUVOREXANT
     Indication: SLEEP DISORDER
     Dosage: 1 DF, HS (ONCE NIGHTLY, 30 MINUTES BEFORE BED)
     Route: 048
     Dates: start: 20180306, end: 20180311
  2. BELSOMRA [Suspect]
     Active Substance: SUVOREXANT
     Indication: SLEEP DISORDER
     Dosage: 1 DF, HS ((ONCE NIGHTLY, 30 MINUTES BEFORE BED))
     Route: 048
     Dates: start: 20180306, end: 20180311

REACTIONS (1)
  - Drug ineffective [Unknown]

NARRATIVE: CASE EVENT DATE: 201803
